FAERS Safety Report 21321878 (Version 1)
Quarter: 2022Q3

REPORT INFORMATION
  Report Type: Spontaneous
  Country: US (occurrence: US)
  Receive Date: 20220912
  Receipt Date: 20220912
  Transmission Date: 20221026
  Serious: No
  Sender: FDA-Public Use
  Company Number: US-ALLERGAN-2215544US

PATIENT
  Age: 73 Year
  Sex: Male

DRUGS (6)
  1. ANDRODERM [Suspect]
     Active Substance: TESTOSTERONE
     Indication: Blood testosterone decreased
     Dosage: UNK
     Route: 062
     Dates: start: 20220307
  2. ANDRODERM [Suspect]
     Active Substance: TESTOSTERONE
     Indication: Night sweats
  3. Unknown Amino Acid [Concomitant]
     Indication: Product used for unknown indication
     Dosage: UNK
     Route: 048
  4. unknown Minerals [Concomitant]
     Indication: Product used for unknown indication
     Dosage: UNK
     Route: 048
  5. Alpha Boric Acid [Concomitant]
     Indication: Product used for unknown indication
     Dosage: UNK
     Route: 048
  6. ANTIOXIDANTS NOS [Concomitant]
     Dosage: UNK
     Route: 048

REACTIONS (5)
  - Incorrect dose administered [Unknown]
  - Off label use [Unknown]
  - Application site hypoaesthesia [Recovered/Resolved]
  - Application site pruritus [Recovered/Resolved]
  - Device delivery system issue [Unknown]

NARRATIVE: CASE EVENT DATE: 20220307
